FAERS Safety Report 6118262-1 (Version None)
Quarter: 2009Q1

REPORT INFORMATION
  Report Type: 
  Country: None (occurrence: None)
  Receive Date: 20090314
  Receipt Date: 20090210
  Transmission Date: 20090719
  Serious: No
  Sender: FDA-Public Use
  Company Number: US-ABBOTT-09P-163-0503364-00

PATIENT
  Sex: Female
  Weight: 54.934 kg

DRUGS (5)
  1. HUMIRA [Suspect]
     Indication: ANKYLOSING SPONDYLITIS
     Route: 058
     Dates: start: 20090127
  2. NASACORT [Concomitant]
     Indication: HYPERSENSITIVITY
  3. SULFASALAZINE [Concomitant]
     Indication: ANKYLOSING SPONDYLITIS
  4. UNKNOWN HORMONE REPLACEMENTS [Concomitant]
     Indication: HORMONE REPLACEMENT THERAPY
  5. PREVACID [Concomitant]
     Indication: GASTROOESOPHAGEAL REFLUX DISEASE

REACTIONS (3)
  - COUGH [None]
  - INCORRECT DOSE ADMINISTERED [None]
  - SNEEZING [None]
